FAERS Safety Report 23240902 (Version 1)
Quarter: 2023Q4

REPORT INFORMATION
  Report Type: Spontaneous
  Country: CA (occurrence: CA)
  Receive Date: 20231129
  Receipt Date: 20231129
  Transmission Date: 20240110
  Serious: No
  Sender: FDA-Public Use
  Company Number: CA-METHAPHARM-2023-CA-000558

PATIENT
  Sex: 0

DRUGS (1)
  1. PROVOCHOLINE [Suspect]
     Active Substance: METHACHOLINE CHLORIDE
     Indication: Product used for unknown indication

REACTIONS (1)
  - Myalgia intercostal [Unknown]
